FAERS Safety Report 4547459-7 (Version None)
Quarter: 2005Q1

REPORT INFORMATION
  Report Type: 
  Country: None (occurrence: None)
  Receive Date: 20050107
  Receipt Date: 20041214
  Transmission Date: 20050727
  Serious: Yes (Other)
  Sender: FDA-Public Use
  Company Number: BE-GLAXOSMITHKLINE-B0362700A

PATIENT
  Age: 51 Year
  Sex: Female

DRUGS (1)
  1. MALARONE [Suspect]
     Indication: MALARIA PROPHYLAXIS
     Route: 065

REACTIONS (4)
  - ACCOMMODATION DISORDER [None]
  - CATARACT [None]
  - VISION BLURRED [None]
  - VISUAL ACUITY REDUCED TRANSIENTLY [None]
